FAERS Safety Report 6518238-6 (Version None)
Quarter: 2009Q4

REPORT INFORMATION
  Report Type: 
  Country: None (occurrence: None)
  Receive Date: 20091223
  Receipt Date: 20091223
  Transmission Date: 20100525
  Serious: No
  Sender: FDA-Public Use
  Company Number: None

PATIENT
  Age: 50 Year
  Sex: Female
  Weight: 102.0593 kg

DRUGS (1)
  1. OXYCODONE AND ACETAMINOPHEN [Suspect]
     Indication: PAIN
     Dosage: TAKE ONE TO TWO TABLETS EVERY 4 HOURS PO
     Route: 048
     Dates: start: 20091221, end: 20091221

REACTIONS (4)
  - DRUG DISPENSING ERROR [None]
  - DYSPNOEA [None]
  - LIP SWELLING [None]
  - MEDICATION ERROR [None]
